FAERS Safety Report 4755713-9 (Version None)
Quarter: 2005Q3

REPORT INFORMATION
  Report Type: 
  Country: None (occurrence: None)
  Receive Date: 20050830
  Receipt Date: 20050711
  Transmission Date: 20060218
  Serious: Yes (Hospitalization)
  Sender: FDA-Public Use
  Company Number: US-BRISTOL-MYERS SQUIBB COMPANY-13033139

PATIENT
  Age: 50 Year
  Sex: Male
  Weight: 91 kg

DRUGS (5)
  1. ABILIFY [Suspect]
     Indication: SCHIZOPHRENIA
  2. LEXAPRO [Concomitant]
  3. ATIVAN [Concomitant]
     Dates: start: 20050707
  4. GLUCOPHAGE [Concomitant]
     Dates: start: 20050711
  5. GLIPIZIDE [Concomitant]

REACTIONS (1)
  - BLOOD GLUCOSE INCREASED [None]
